FAERS Safety Report 4917245-4 (Version None)
Quarter: 2006Q1

REPORT INFORMATION
  Report Type: 
  Country: None (occurrence: None)
  Receive Date: 20060221
  Receipt Date: 20051101
  Transmission Date: 20060701
  Serious: Yes (Hospitalization)
  Sender: FDA-Public Use
  Company Number: US-MERCK-0511USA00234

PATIENT
  Age: 60 Year
  Sex: Female
  Weight: 86 kg

DRUGS (1)
  1. VIOXX [Suspect]
     Indication: ARTHRALGIA
     Route: 048
     Dates: end: 20030101

REACTIONS (34)
  - ANGINA UNSTABLE [None]
  - ANXIETY [None]
  - ARTHROPATHY [None]
  - CARDIAC FAILURE CONGESTIVE [None]
  - CHEST PAIN [None]
  - COLONIC POLYP [None]
  - CORONARY ARTERY DISEASE [None]
  - DEPRESSION [None]
  - DIABETES MELLITUS [None]
  - DIVERTICULUM [None]
  - DIZZINESS [None]
  - DYSLIPIDAEMIA [None]
  - DYSPNOEA [None]
  - DYSPNOEA PAROXYSMAL NOCTURNAL [None]
  - EXERCISE TOLERANCE DECREASED [None]
  - GASTROOESOPHAGEAL REFLUX DISEASE [None]
  - HAEMATOCHEZIA [None]
  - HYPERLIPIDAEMIA [None]
  - HYPERTENSION [None]
  - HYPOTHYROIDISM [None]
  - MALAISE [None]
  - MYOCARDIAL INFARCTION [None]
  - MYOCARDIAL ISCHAEMIA [None]
  - NAUSEA [None]
  - NERVOUSNESS [None]
  - OBESITY [None]
  - OEDEMA PERIPHERAL [None]
  - OESOPHAGITIS [None]
  - OSTEOPOROSIS [None]
  - PULMONARY OEDEMA [None]
  - RADICULITIS [None]
  - SPINAL COMPRESSION FRACTURE [None]
  - VENTRICULAR HYPERTROPHY [None]
  - VOMITING [None]
